FAERS Safety Report 7746888-8 (Version None)
Quarter: 2011Q3

REPORT INFORMATION
  Report Type: 
  Country: None (occurrence: None)
  Receive Date: 20110913
  Receipt Date: 20110901
  Transmission Date: 20111222
  Serious: Yes (Death, Hospitalization)
  Sender: FDA-Public Use
  Company Number: US-CELGENEUS-163-21880-11052066

PATIENT
  Sex: Female
  Weight: 56.432 kg

DRUGS (26)
  1. REVLIMID [Suspect]
     Indication: MULTIPLE MYELOMA
     Dosage: 15 MILLIGRAM
     Route: 048
     Dates: start: 20110415, end: 20110502
  2. DEXAMETHASONE [Concomitant]
     Dosage: 8 MILLIGRAM
     Route: 065
     Dates: start: 20110401
  3. RED BLOOD CELLS [Concomitant]
     Dosage: 1 UNIT
     Route: 041
     Dates: start: 20110401, end: 20110401
  4. GABAPENTIN [Concomitant]
     Dosage: 300 MILLIGRAM
     Route: 065
  5. MORPHINE SULFATE [Concomitant]
     Dosage: 15 MILLIGRAM
     Route: 065
  6. GLIPIZIDE [Concomitant]
     Route: 065
  7. COMPAZINE [Concomitant]
     Dosage: 10 MILLIGRAM
     Route: 065
  8. TYLENOL-500 [Concomitant]
     Dosage: 500 MILLIGRAM
     Route: 065
  9. MEGACE [Concomitant]
     Route: 065
     Dates: start: 20110101
  10. DEXAMETHASONE [Concomitant]
     Dosage: 1 MILLIGRAM
     Route: 065
  11. INSULIN [Concomitant]
     Dosage: SLIDING SCALE
     Route: 065
     Dates: start: 20110401
  12. CALCIUM WITH VITAMIN D [Concomitant]
     Route: 065
  13. OXYGEN [Concomitant]
     Dosage: 3.5 LITERS
     Route: 045
  14. OXYGEN [Concomitant]
     Dosage: 2 LITERS
     Route: 045
  15. MAGNESIUM [Concomitant]
     Route: 065
     Dates: start: 20110401
  16. SODIUM CHLORIDE [Concomitant]
     Indication: DEHYDRATION
     Dosage: .5 LITERS
     Route: 040
     Dates: start: 20110401, end: 20110401
  17. LANTUS [Concomitant]
     Route: 065
     Dates: start: 20110429
  18. FLUID [Concomitant]
     Indication: DEHYDRATION
     Route: 041
     Dates: start: 20110401, end: 20110401
  19. LEVAQUIN [Concomitant]
     Route: 065
  20. MS CONTIN [Concomitant]
     Dosage: 30 MILLIGRAM
     Route: 065
  21. ASPIRIN [Concomitant]
     Dosage: 325 MILLIGRAM
     Route: 065
  22. KAYEXALATE [Concomitant]
     Route: 065
  23. OMEPRAZOLE [Concomitant]
     Indication: PROPHYLAXIS
     Route: 065
  24. RED BLOOD CELLS [Concomitant]
     Dosage: 2 UNITS
     Route: 041
     Dates: start: 20110503, end: 20110503
  25. MORPHINE SULFATE [Concomitant]
     Dosage: 50 MILLIGRAM
     Route: 065
  26. OXYGEN [Concomitant]
     Dosage: 3 LITERS
     Route: 045

REACTIONS (5)
  - BACTERAEMIA [None]
  - PANCYTOPENIA [None]
  - RENAL FAILURE ACUTE [None]
  - DEHYDRATION [None]
  - MULTIPLE MYELOMA [None]
